FAERS Safety Report 18287558 (Version 1)
Quarter: 2020Q3

REPORT INFORMATION
  Report Type: Spontaneous
  Country: US (occurrence: US)
  Receive Date: 20200918
  Receipt Date: 20200918
  Transmission Date: 20201103
  Serious: No
  Sender: FDA-Public Use
  Company Number: None

PATIENT
  Age: 32 Year
  Sex: Male

DRUGS (1)
  1. COLISTIMETHATE INJ 150MG [Suspect]
     Active Substance: COLISTIMETHATE SODIUM
     Route: 055
     Dates: start: 202009

REACTIONS (1)
  - Product storage error [None]

NARRATIVE: CASE EVENT DATE: 20200916
